FAERS Safety Report 7503342-6 (Version None)
Quarter: 2011Q2

REPORT INFORMATION
  Report Type: 
  Country: None (occurrence: None)
  Receive Date: 20110524
  Receipt Date: 20110524
  Transmission Date: 20111010
  Serious: Yes (Hospitalization)
  Sender: FDA-Public Use
  Company Number: None

PATIENT
  Sex: Male
  Weight: 72.3 kg

DRUGS (2)
  1. CLOZAPINE [Suspect]
     Dosage: 75MG QHS PO
     Route: 048
  2. CLOZAPINE [Suspect]
     Indication: PSYCHOTIC DISORDER
     Dosage: 100MG QAM PO
     Route: 048
     Dates: start: 20110414, end: 20110426

REACTIONS (4)
  - LETHARGY [None]
  - ELECTROCARDIOGRAM ABNORMAL [None]
  - TACHYCARDIA [None]
  - BODY TEMPERATURE INCREASED [None]
